FAERS Safety Report 26097605 (Version 1)
Quarter: 2025Q4

REPORT INFORMATION
  Report Type: Spontaneous
  Country: EU (occurrence: EU)
  Receive Date: 20251127
  Receipt Date: 20251127
  Transmission Date: 20260117
  Serious: Yes (Hospitalization)
  Sender: RADIUS PHARM
  Company Number: None

PATIENT
  Age: 76 Year
  Sex: Female
  Weight: 40 kg

DRUGS (3)
  1. ABALOPARATIDE [Suspect]
     Active Substance: ABALOPARATIDE
     Indication: Osteoporosis
     Dosage: 1 VIAL SUBCUTANEOUSLY PER DAY
     Route: 058
     Dates: start: 20250708, end: 20250915
  2. TELMISARTAN [Suspect]
     Active Substance: TELMISARTAN
     Indication: Hypertension
     Dosage: INITIALLY AS NEEDED ONLY IF BLOOD PRESSURE WAS HIGH, THEN 1 PER DAY (20 MG) SINCE BLOOD PRESSURE REM
     Route: 048
     Dates: start: 20250820, end: 20250930
  3. ACLIDINIO [Concomitant]
     Indication: Chronic obstructive pulmonary disease

REACTIONS (2)
  - Hyponatraemia [Recovering/Resolving]
  - Blood pressure abnormal [Recovering/Resolving]

NARRATIVE: CASE EVENT DATE: 20250701
